FAERS Safety Report 7608804-9 (Version None)
Quarter: 2011Q3

REPORT INFORMATION
  Report Type: 
  Country: None (occurrence: None)
  Receive Date: 20110714
  Receipt Date: 20110709
  Transmission Date: 20111222
  Serious: Yes (Other)
  Sender: FDA-Public Use
  Company Number: US-PFIZER INC-2011155831

PATIENT

DRUGS (1)
  1. VIAGRA [Suspect]
     Dosage: 50 MG, UNK

REACTIONS (3)
  - PLEURITIC PAIN [None]
  - FEELING ABNORMAL [None]
  - SINUS HEADACHE [None]
